FAERS Safety Report 4735571-9 (Version None)
Quarter: 2005Q3

REPORT INFORMATION
  Report Type: 
  Country: None (occurrence: None)
  Receive Date: 20050805
  Receipt Date: 20050412
  Transmission Date: 20060218
  Serious: Yes (Hospitalization, Disabling, Other)
  Sender: FDA-Public Use
  Company Number: US-MERCK-0504USA02140

PATIENT
  Age: 46 Year
  Sex: Male
  Weight: 99 kg

DRUGS (9)
  1. VIOXX [Suspect]
     Indication: ARTHRITIS
     Route: 048
     Dates: start: 20000801, end: 20030301
  2. VIOXX [Suspect]
     Route: 048
     Dates: start: 20030401, end: 20030501
  3. VIOXX [Suspect]
     Route: 048
  4. VIOXX [Suspect]
     Route: 048
  5. PLENDIL [Concomitant]
     Indication: HYPERTENSION
     Route: 065
     Dates: start: 20020101, end: 20030101
  6. LASIX [Concomitant]
     Indication: HYPERTENSION
     Route: 065
  7. LOTREL [Concomitant]
     Indication: HYPERTENSION
     Route: 065
  8. LOPRESSOR [Concomitant]
     Route: 065
     Dates: start: 20020101, end: 20030101
  9. BEXTRA [Concomitant]
     Route: 065

REACTIONS (10)
  - ANGINA UNSTABLE [None]
  - ANGIOPATHY [None]
  - ARTERIAL OCCLUSIVE DISEASE [None]
  - CARDIAC DISORDER [None]
  - CEREBROVASCULAR ACCIDENT [None]
  - CHEST PAIN [None]
  - DRUG HYPERSENSITIVITY [None]
  - HYPERSENSITIVITY [None]
  - LOSS OF CONSCIOUSNESS [None]
  - OSTEOARTHRITIS [None]
